FAERS Safety Report 14484937 (Version 1)
Quarter: 2018Q1

REPORT INFORMATION
  Report Type: Spontaneous
  Country: US (occurrence: US)
  Receive Date: 20180205
  Receipt Date: 20180205
  Transmission Date: 20180509
  Serious: No
  Sender: FDA-Public Use
  Company Number: US-BAYER-2018-022338

PATIENT
  Age: 90 Year
  Sex: Male
  Weight: 76 kg

DRUGS (4)
  1. ALEVE [Suspect]
     Active Substance: NAPROXEN SODIUM
     Indication: PAIN
     Dosage: 3-4 TABLETS DAILY
     Route: 048
     Dates: start: 201801
  2. SILODOSIN [Concomitant]
     Active Substance: SILODOSIN
  3. CIALIS [Concomitant]
     Active Substance: TADALAFIL
  4. NEXIUM [Concomitant]
     Active Substance: ESOMEPRAZOLE MAGNESIUM

REACTIONS (2)
  - Incorrect dosage administered [Unknown]
  - Drug ineffective [Unknown]

NARRATIVE: CASE EVENT DATE: 201801
